FAERS Safety Report 16456451 (Version 1)
Quarter: 2019Q2

REPORT INFORMATION
  Report Type: Report from Study
  Country: AU (occurrence: AU)
  Receive Date: 20190620
  Receipt Date: 20190620
  Transmission Date: 20190711
  Serious: Yes (Hospitalization, Other)
  Sender: FDA-Public Use
  Company Number: AU-BEH-2019101046

PATIENT
  Age: 67 Year
  Sex: Female

DRUGS (8)
  1. HIZENTRA [Suspect]
     Active Substance: HUMAN IMMUNOGLOBULIN G
     Dosage: 1 G, X 2
     Route: 065
     Dates: start: 20180730
  2. HIZENTRA [Suspect]
     Active Substance: HUMAN IMMUNOGLOBULIN G
     Dosage: 10 G, SINGLE
     Route: 065
     Dates: start: 20180810
  3. HIZENTRA [Suspect]
     Active Substance: HUMAN IMMUNOGLOBULIN G
     Dosage: 4 G, X 2
     Route: 065
     Dates: start: 20180624
  4. HIZENTRA [Suspect]
     Active Substance: HUMAN IMMUNOGLOBULIN G
     Dosage: 4 G, X 2
     Route: 065
     Dates: start: 20180730
  5. HIZENTRA [Suspect]
     Active Substance: HUMAN IMMUNOGLOBULIN G
     Dosage: 4 G, X 2
     Route: 065
     Dates: start: 20180615
  6. HIZENTRA [Suspect]
     Active Substance: HUMAN IMMUNOGLOBULIN G
     Dosage: 1 G, X 2
     Route: 065
     Dates: start: 20180615
  7. HIZENTRA [Suspect]
     Active Substance: HUMAN IMMUNOGLOBULIN G
     Indication: CHRONIC LYMPHOCYTIC LEUKAEMIA
     Dosage: 10 G, FORTNIGHTLY
     Route: 065
     Dates: start: 20180224, end: 20190430
  8. HIZENTRA [Suspect]
     Active Substance: HUMAN IMMUNOGLOBULIN G
     Dosage: 1 G, X 2
     Route: 065
     Dates: start: 20180624

REACTIONS (5)
  - Respiratory syncytial virus infection [Recovered/Resolved]
  - Haemophilus infection [Recovered/Resolved]
  - Aspergillus infection [Not Recovered/Not Resolved]
  - Lung infection [Recovered/Resolved]
  - Influenza [Recovered/Resolved]

NARRATIVE: CASE EVENT DATE: 20180618
